FAERS Safety Report 8120912-5 (Version None)
Quarter: 2012Q1

REPORT INFORMATION
  Report Type: 
  Country: None (occurrence: None)
  Receive Date: 20120208
  Receipt Date: 20120131
  Transmission Date: 20120608
  Serious: Yes (Life-Threatening, Other)
  Sender: FDA-Public Use
  Company Number: NL-ELI_LILLY_AND_COMPANY-NL201201009380

PATIENT
  Sex: Male
  Weight: 80 kg

DRUGS (1)
  1. STRATTERA [Suspect]
     Indication: ATTENTION DEFICIT/HYPERACTIVITY DISORDER
     Dosage: 18 MG, BID
     Dates: start: 20110301, end: 20110801

REACTIONS (2)
  - DEPRESSION [None]
  - SUICIDAL IDEATION [None]
